FAERS Safety Report 10241338 (Version 2)
Quarter: 2014Q2

REPORT INFORMATION
  Report Type: Spontaneous
  Country: US (occurrence: US)
  Receive Date: 20140617
  Receipt Date: 20140620
  Transmission Date: 20141212
  Serious: No
  Sender: FDA-Public Use
  Company Number: US-PFIZER INC-2014161277

PATIENT
  Sex: Male

DRUGS (1)
  1. SUTENT [Suspect]
     Indication: NEOPLASM MALIGNANT
     Dosage: UNK, (ON SECOND 28 DAY CYCLE)
     Dates: end: 201406

REACTIONS (3)
  - Constipation [Unknown]
  - Disease progression [Unknown]
  - Neoplasm malignant [Unknown]
